FAERS Safety Report 9727621 (Version 1)
Quarter: 2013Q4

REPORT INFORMATION
  Report Type: Spontaneous
  Country: US (occurrence: US)
  Receive Date: 20131203
  Receipt Date: 20131203
  Transmission Date: 20140711
  Serious: Yes (Other)
  Sender: FDA-Public Use
  Company Number: US-BAXTER-2013BAX047580

PATIENT
  Age: 62 Year
  Sex: Male

DRUGS (5)
  1. METRONIDAZOLE [Suspect]
     Indication: HELICOBACTER GASTRITIS
     Route: 065
  2. METRONIDAZOLE [Suspect]
     Indication: CLOSTRIDIUM DIFFICILE COLITIS
  3. OMEPRAZOLE [Suspect]
     Indication: HELICOBACTER GASTRITIS
     Route: 065
  4. BISMUTH [Suspect]
     Indication: HELICOBACTER GASTRITIS
     Route: 065
  5. TETRACYCLINE [Suspect]
     Indication: HELICOBACTER GASTRITIS
     Route: 065

REACTIONS (1)
  - Clostridium difficile colitis [Recovered/Resolved]
